FAERS Safety Report 8184586-X (Version None)
Quarter: 2012Q1

REPORT INFORMATION
  Report Type: 
  Country: None (occurrence: None)
  Receive Date: 20120210
  Receipt Date: 20110722
  Transmission Date: 20120608
  Serious: Yes (Hospitalization)
  Sender: FDA-Public Use
  Company Number: 2011BH021397

PATIENT
  Age: 49 Year
  Sex: Male
  Weight: 66 kg

DRUGS (6)
  1. ONDANSETRON [Concomitant]
  2. IFEX/MESNEX KIT [Suspect]
     Indication: SARCOMA
     Dosage: 9000 MG;1X;IV
     Route: 042
     Dates: start: 20110613, end: 20110614
  3. APREPITANT [Concomitant]
  4. FENTANYL [Concomitant]
  5. ENOXAPARIN [Concomitant]
  6. DILAUDID [Concomitant]

REACTIONS (6)
  - HALLUCINATION, TACTILE [None]
  - CONFUSIONAL STATE [None]
  - DELUSION [None]
  - ANXIETY [None]
  - HALLUCINATION, VISUAL [None]
  - AGITATION [None]
